FAERS Safety Report 13549647 (Version 1)
Quarter: 2017Q2

REPORT INFORMATION
  Report Type: Spontaneous
  Country: ES (occurrence: ES)
  Receive Date: 20170516
  Receipt Date: 20170516
  Transmission Date: 20170830
  Serious: Yes (Hospitalization)
  Sender: FDA-Public Use
  Company Number: ES-AUROBINDO-AUR-APL-2017-34037

PATIENT
  Age: 64 Year
  Sex: Male

DRUGS (3)
  1. PEGINTERFERON ALFA-2A [Suspect]
     Active Substance: PEGINTERFERON ALFA-2A
     Indication: HEPATITIS C
     Dosage: 180 MG/WEEK
     Route: 065
  2. RIBAVIRIN. [Suspect]
     Active Substance: RIBAVIRIN
     Indication: HEPATITIS C
     Dosage: 1200 MG, DAILY
     Route: 065
  3. SIMEPREVIR [Suspect]
     Active Substance: SIMEPREVIR
     Indication: HEPATITIS C
     Dosage: 800 MG/EVERY 8 HRS
     Route: 065

REACTIONS (7)
  - Aplastic anaemia [Not Recovered/Not Resolved]
  - Pancytopenia [Not Recovered/Not Resolved]
  - Neutropenia [Not Recovered/Not Resolved]
  - Haemoglobin decreased [Not Recovered/Not Resolved]
  - Anal fissure [Not Recovered/Not Resolved]
  - Pyrexia [Not Recovered/Not Resolved]
  - Septic shock [Not Recovered/Not Resolved]
